FAERS Safety Report 12506378 (Version 2)
Quarter: 2016Q3

REPORT INFORMATION
  Report Type: Spontaneous
  Country: IT (occurrence: IT)
  Receive Date: 20160628
  Receipt Date: 20160707
  Transmission Date: 20161109
  Serious: Yes (Death)
  Sender: FDA-Public Use
  Company Number: IT-FRESENIUS KABI-FK201603910

PATIENT
  Age: 82 Year
  Sex: Female

DRUGS (8)
  1. LEVOFLOXACIN. [Suspect]
     Active Substance: LEVOFLOXACIN
     Indication: STAPHYLOCOCCAL INFECTION
     Route: 048
     Dates: start: 20150521, end: 20150521
  2. FENTANYL. [Suspect]
     Active Substance: FENTANYL
     Route: 048
     Dates: start: 20150602, end: 20150602
  3. RIFAMPICIN [Suspect]
     Active Substance: RIFAMPIN
     Indication: STAPHYLOCOCCAL INFECTION
     Route: 042
     Dates: start: 20150521
  4. VANCOMYCIN (MANUFACTURER UNKNOWN) [Suspect]
     Active Substance: VANCOMYCIN
     Route: 042
     Dates: start: 20150522
  5. FENTANYL. [Suspect]
     Active Substance: FENTANYL
     Indication: ISCHAEMIC LIMB PAIN
     Route: 062
     Dates: start: 20150528, end: 20150602
  6. LEVOFLOXACIN. [Suspect]
     Active Substance: LEVOFLOXACIN
     Route: 048
     Dates: start: 20150522
  7. FENTANYL. [Suspect]
     Active Substance: FENTANYL
     Route: 062
     Dates: start: 20150521, end: 20150527
  8. VANCOMYCIN (MANUFACTURER UNKNOWN) [Suspect]
     Active Substance: VANCOMYCIN
     Indication: STAPHYLOCOCCAL INFECTION
     Route: 042
     Dates: start: 20160521, end: 20150521

REACTIONS (7)
  - Hallucination [Fatal]
  - Status epilepticus [Fatal]
  - Tremor [Fatal]
  - Drug interaction [Fatal]
  - Prescribed overdose [Fatal]
  - Altered state of consciousness [Fatal]
  - Somnolence [Fatal]

NARRATIVE: CASE EVENT DATE: 20150602
